FAERS Safety Report 21937097 (Version 1)
Quarter: 2023Q1

REPORT INFORMATION
  Report Type: Spontaneous
  Country: FR (occurrence: FR)
  Receive Date: 20230201
  Receipt Date: 20230201
  Transmission Date: 20230418
  Serious: Yes (Life-Threatening, Hospitalization)
  Sender: FDA-Public Use
  Company Number: None

PATIENT
  Age: 17 Year
  Sex: Male
  Weight: 70 kg

DRUGS (1)
  1. IBUPROFEN [Suspect]
     Active Substance: IBUPROFEN
     Indication: Sinusitis
     Dosage: 1600 MILLIGRAM DAILY; 400MG X 4 PER DAY,
     Route: 065
     Dates: start: 20221221, end: 20221226

REACTIONS (3)
  - Central nervous system vasculitis [Not Recovered/Not Resolved]
  - Brain empyema [Not Recovered/Not Resolved]
  - Eye abscess [Not Recovered/Not Resolved]

NARRATIVE: CASE EVENT DATE: 20221226
